FAERS Safety Report 24045114 (Version 1)
Quarter: 2024Q3

REPORT INFORMATION
  Report Type: Other
  Country: CA (occurrence: CA)
  Receive Date: 20240703
  Receipt Date: 20240703
  Transmission Date: 20241016
  Serious: Yes (Other)
  Sender: PFIZER
  Company Number: CA-PFIZER INC-202400205227

PATIENT
  Age: 42 Year
  Sex: Female

DRUGS (9)
  1. HYDROCORTISONE [Suspect]
     Active Substance: HYDROCORTISONE\HYDROCORTISONE ACETATE
     Indication: Rhinitis allergic
  2. HYDROCORTISONE [Suspect]
     Active Substance: HYDROCORTISONE\HYDROCORTISONE ACETATE
     Indication: Dermatitis atopic
  3. HYDROCORTISONE [Suspect]
     Active Substance: HYDROCORTISONE\HYDROCORTISONE ACETATE
     Indication: Asthma
  4. BETAMETHASONE [Suspect]
     Active Substance: BETAMETHASONE\BETAMETHASONE DIPROPIONATE
     Indication: Rhinitis allergic
     Route: 061
  5. BETAMETHASONE [Suspect]
     Active Substance: BETAMETHASONE\BETAMETHASONE DIPROPIONATE
     Indication: Dermatitis atopic
  6. BETAMETHASONE [Suspect]
     Active Substance: BETAMETHASONE\BETAMETHASONE DIPROPIONATE
     Indication: Asthma
  7. FLUTICASONE [Suspect]
     Active Substance: FLUTICASONE
     Indication: Rhinitis allergic
  8. FLUTICASONE [Suspect]
     Active Substance: FLUTICASONE
     Indication: Dermatitis atopic
  9. FLUTICASONE [Suspect]
     Active Substance: FLUTICASONE
     Indication: Asthma

REACTIONS (1)
  - Condition aggravated [Recovering/Resolving]
